FAERS Safety Report 22943184 (Version 3)
Quarter: 2025Q3

REPORT INFORMATION
  Report Type: Report from Study
  Country: CA (occurrence: CA)
  Receive Date: 20230914
  Receipt Date: 20250922
  Transmission Date: 20251020
  Serious: Yes (Life-Threatening, Other)
  Sender: TAKEDA
  Company Number: CA-TAKEDA-2023TUS089252

PATIENT
  Sex: Male

DRUGS (20)
  1. VEDOLIZUMAB [Suspect]
     Active Substance: VEDOLIZUMAB
     Indication: Colitis ulcerative
  2. VEDOLIZUMAB [Suspect]
     Active Substance: VEDOLIZUMAB
     Dosage: 300 MILLIGRAM, Q4WEEKS
     Dates: start: 20190206
  3. VEDOLIZUMAB [Suspect]
     Active Substance: VEDOLIZUMAB
     Dosage: 300 MILLIGRAM, Q4WEEKS
  4. VEDOLIZUMAB [Suspect]
     Active Substance: VEDOLIZUMAB
     Dosage: 300 MILLIGRAM, Q4WEEKS
  5. Salofalk [Concomitant]
  6. CORTIFOAM [Concomitant]
     Active Substance: HYDROCORTISONE ACETATE
  7. MAVIK [Concomitant]
     Active Substance: TRANDOLAPRIL
     Indication: Blood pressure increased
  8. RABEPRAZOLE [Concomitant]
     Active Substance: RABEPRAZOLE
     Indication: Oesophageal disorder
  9. MACROBID [Concomitant]
     Active Substance: NITROFURANTOIN\NITROFURANTOIN MONOHYDRATE
     Indication: Blood urine present
  10. ALLOPURINOL [Concomitant]
     Active Substance: ALLOPURINOL
  11. COLCHICINE [Concomitant]
     Active Substance: COLCHICINE
  12. CITALOPRAM [Concomitant]
     Active Substance: CITALOPRAM
  13. VITAMIN D3 [Concomitant]
     Active Substance: CHOLECALCIFEROL
  14. VITAMIN B12 [Concomitant]
     Active Substance: CYANOCOBALAMIN
  15. BISOPROLOL [Concomitant]
     Active Substance: BISOPROLOL
  16. ALBUTEROL [Concomitant]
     Active Substance: ALBUTEROL
  17. BREZTRI [Concomitant]
     Active Substance: BUDESONIDE\FORMOTEROL\GLYCOPYRROLATE
  18. LASIX [Concomitant]
     Active Substance: FUROSEMIDE
  19. PREDNISONE [Concomitant]
     Active Substance: PREDNISONE
  20. FEBUXOSTAT [Concomitant]
     Active Substance: FEBUXOSTAT

REACTIONS (4)
  - Thrombosis [Recovering/Resolving]
  - Localised infection [Recovered/Resolved with Sequelae]
  - Gout [Recovering/Resolving]
  - Pain in extremity [Recovering/Resolving]
